FAERS Safety Report 11719321 (Version 1)
Quarter: 2015Q4

REPORT INFORMATION
  Report Type: Spontaneous
  Country: GB (occurrence: AU)
  Receive Date: 20151110
  Receipt Date: 20151110
  Transmission Date: 20160304
  Serious: Yes (Death, Life-Threatening, Hospitalization, Other)
  Sender: FDA-Public Use
  Company Number: GB-TEVA-605915ACC

PATIENT
  Age: 86 Year
  Sex: Male
  Weight: 57 kg

DRUGS (5)
  1. DIGOXIN. [Suspect]
     Active Substance: DIGOXIN
     Indication: ARRHYTHMIA
     Dosage: 125 MICROGRAM DAILY;
     Route: 065
     Dates: start: 19901014, end: 19901028
  2. FRUSEMIDE [Suspect]
     Active Substance: FUROSEMIDE
     Indication: CARDIAC FAILURE CONGESTIVE
     Dosage: 40 MILLIGRAM DAILY;
     Route: 065
     Dates: start: 19901014, end: 19901029
  3. CLONAZEPAM. [Suspect]
     Active Substance: CLONAZEPAM
     Indication: PAIN
     Dosage: 1 MG (DAILY DOSE), , UNKNOWN
     Route: 065
     Dates: start: 19901027, end: 19901028
  4. PANADEINE [Suspect]
     Active Substance: ACETAMINOPHEN\CODEINE PHOSPHATE
     Indication: PAIN
     Dosage: 2 DOSAGE FORMS DAILY;
     Route: 065
     Dates: start: 19901014, end: 19901029
  5. VOLTAREN [Suspect]
     Active Substance: DICLOFENAC SODIUM
     Indication: PAIN
     Dosage: 150 MILLIGRAM DAILY;
     Route: 065
     Dates: start: 19901023, end: 19901029

REACTIONS (6)
  - Encephalopathy [Fatal]
  - Cyanosis [Unknown]
  - Urinary incontinence [Unknown]
  - Cardiac arrest [Fatal]
  - Acute kidney injury [Fatal]
  - Confusional state [Unknown]

NARRATIVE: CASE EVENT DATE: 19911028
